FAERS Safety Report 8974137 (Version 1)
Quarter: 2012Q4

REPORT INFORMATION
  Report Type: Spontaneous
  Country: US (occurrence: None)
  Receive Date: 20121213
  Receipt Date: 20121213
  Transmission Date: 20130627
  Serious: Yes (Life-Threatening, Hospitalization)
  Sender: FDA-Public Use
  Company Number: None

PATIENT
  Age: 80 Year
  Sex: Female

DRUGS (1)
  1. LOVENOX [Suspect]
     Dosage: 50 MG SUBQ BID
     Route: 058
     Dates: start: 20120918, end: 20120919

REACTIONS (4)
  - Haemoglobin decreased [None]
  - Haematocrit decreased [None]
  - Asthenia [None]
  - Gastrointestinal haemorrhage [None]
